FAERS Safety Report 10146776 (Version 1)
Quarter: 2014Q2

REPORT INFORMATION
  Report Type: Spontaneous
  Country: US (occurrence: US)
  Receive Date: 20140501
  Receipt Date: 20140501
  Transmission Date: 20141212
  Serious: No
  Sender: FDA-Public Use
  Company Number: US-BAUSCH-BL-2013-002223

PATIENT
  Age: 44 Year
  Sex: Male

DRUGS (6)
  1. LOTEMAX (LOTEPREDNOL ETABONATE OPHTHALMIC SUSPENSION 0.5%) [Suspect]
     Indication: DRY EYE
     Dosage: ONE DROP INTO EACH EYE 4-5 TIMES DAILY
     Route: 047
     Dates: start: 20130317, end: 20130323
  2. LOTEMAX (LOTEPREDNOL ETABONATE OPHTHALMIC SUSPENSION 0.5%) [Suspect]
     Indication: LACRIMATION INCREASED
  3. LOTEMAX (LOTEPREDNOL ETABONATE OPHTHALMIC SUSPENSION 0.5%) [Suspect]
     Indication: EYE PAIN
  4. LOTEMAX (LOTEPREDNOL ETABONATE OPHTHALMIC SUSPENSION 0.5%) [Suspect]
     Indication: INFECTION
  5. DOXYCYCLINE [Concomitant]
     Indication: INFECTION
     Route: 048
  6. HYDROCODONE [Concomitant]
     Indication: PAIN
     Dosage: ONE TABLET AT BEDTIME
     Route: 048

REACTIONS (1)
  - Drug ineffective [Not Recovered/Not Resolved]
